FAERS Safety Report 6335869-7 (Version None)
Quarter: 2009Q3

REPORT INFORMATION
  Report Type: 
  Country: None (occurrence: None)
  Receive Date: 20090828
  Receipt Date: 20090820
  Transmission Date: 20100115
  Serious: Yes (Death)
  Sender: FDA-Public Use
  Company Number: 220053K09GBR

PATIENT
  Age: 49 Year
  Sex: Male

DRUGS (1)
  1. SAIZEN [Suspect]
     Dosage: 8, 1 IN 1 DAYS, SUBCUTANEOUS
     Route: 058
     Dates: start: 20080201, end: 20090815

REACTIONS (1)
  - CEREBROVASCULAR ACCIDENT [None]
